FAERS Safety Report 9796490 (Version 3)
Quarter: 2014Q1

REPORT INFORMATION
  Report Type: Report from Study
  Country: NL (occurrence: NL)
  Receive Date: 20140103
  Receipt Date: 20140210
  Transmission Date: 20141002
  Serious: Yes (Hospitalization)
  Sender: FDA-Public Use
  Company Number: NL-GLAXOSMITHKLINE-B0925585B

PATIENT
  Age: 81 Year
  Sex: Female

DRUGS (2)
  1. PAZOPANIB [Suspect]
     Indication: RENAL CELL CARCINOMA
     Dosage: 800MG PER DAY
     Route: 048
     Dates: start: 20130307
  2. EVEROLIMUS [Suspect]
     Indication: RENAL CELL CARCINOMA
     Route: 048
     Dates: start: 20130628

REACTIONS (1)
  - Sepsis [Recovered/Resolved]
